FAERS Safety Report 24248309 (Version 1)
Quarter: 2024Q3

REPORT INFORMATION
  Report Type: Spontaneous
  Country: US (occurrence: US)
  Receive Date: 20240826
  Receipt Date: 20240826
  Transmission Date: 20241017
  Serious: No
  Sender: CELLTRION
  Company Number: US-CELLTRION INC.-2024US017106

PATIENT

DRUGS (4)
  1. YUFLYMA [Suspect]
     Active Substance: ADALIMUMAB-AATY
     Indication: Fibromyalgia
     Dosage: 40 MG,ONCE EVERY 2 WEEKS
     Route: 058
     Dates: start: 20240331
  2. YUFLYMA [Suspect]
     Active Substance: ADALIMUMAB-AATY
     Indication: Neuralgia
  3. WEGOVY [Concomitant]
     Active Substance: SEMAGLUTIDE
  4. DICLOFENAC [Concomitant]
     Active Substance: DICLOFENAC

REACTIONS (7)
  - Condition aggravated [Not Recovered/Not Resolved]
  - Drug dose omission by device [Not Recovered/Not Resolved]
  - Device malfunction [Not Recovered/Not Resolved]
  - Needle issue [Not Recovered/Not Resolved]
  - Exposure via skin contact [Not Recovered/Not Resolved]
  - Accidental exposure to product [Not Recovered/Not Resolved]
  - Intentional product use issue [Unknown]

NARRATIVE: CASE EVENT DATE: 20240612
